FAERS Safety Report 10076211 (Version 2)
Quarter: 2014Q2

REPORT INFORMATION
  Report Type: Spontaneous
  Country: IT (occurrence: IT)
  Receive Date: 20140414
  Receipt Date: 20140607
  Transmission Date: 20141212
  Serious: Yes (Other)
  Sender: FDA-Public Use
  Company Number: PHHY2014IT044674

PATIENT
  Age: 62 Year
  Sex: Male

DRUGS (7)
  1. ZOMETA [Suspect]
     Indication: PLASMA CELL MYELOMA
     Dosage: 4 MG, CYCLIC
     Route: 042
     Dates: start: 20130125, end: 20140306
  2. REVLIMID [Concomitant]
     Indication: PLASMA CELL MYELOMA
     Dosage: 25 MG, UNK
     Route: 048
     Dates: start: 20130125, end: 20140306
  3. REVLIMID [Concomitant]
     Dosage: 25 MG, 15 CYCLE 1TABLET PER DAY FOR 21 SUBSEQUENT DAYS
     Dates: start: 20140408
  4. SOLDESAM [Concomitant]
     Indication: PLASMA CELL MYELOMA
     Dosage: 40 MG, UNK
     Route: 042
     Dates: start: 20130125, end: 20140306
  5. SOLDESAM [Concomitant]
     Dosage: UNK UKN,40MG 2 VIALS WITH FULL STOMACH AFTER BREAKFAST ON FRIDAY (ALL WEEKS). IG 10 G I.V.
  6. OXYCONTIN [Concomitant]
     Indication: PLASMA CELL MYELOMA
     Dosage: 10 MG, UNK
     Route: 048
  7. VENITAL [Concomitant]
     Dosage: 10 G, UNK
     Route: 042
     Dates: start: 20130125, end: 20140306

REACTIONS (1)
  - Osteonecrosis of jaw [Not Recovered/Not Resolved]
